FAERS Safety Report 5103631-9 (Version None)
Quarter: 2006Q3

REPORT INFORMATION
  Report Type: 
  Country: None (occurrence: None)
  Receive Date: 20060911
  Receipt Date: 20060911
  Transmission Date: 20061208
  Serious: Yes (Hospitalization, Other)
  Sender: FDA-Public Use
  Company Number: None

PATIENT
  Sex: Male

DRUGS (4)
  1. ANASTROZOLE [Suspect]
     Dosage: 1 MG PO
     Route: 048
     Dates: start: 20051012, end: 20060908
  2. LOVASTATIN [Concomitant]
  3. OXYCODONE HCL [Concomitant]
  4. METFORMIN [Concomitant]

REACTIONS (4)
  - CELLULITIS [None]
  - LOCAL SWELLING [None]
  - PAIN IN EXTREMITY [None]
  - SKIN ULCER [None]
